FAERS Safety Report 9736109 (Version 3)
Quarter: 2013Q4

REPORT INFORMATION
  Report Type: Report from Study
  Country: DE (occurrence: DE)
  Receive Date: 20131206
  Receipt Date: 20131223
  Transmission Date: 20140711
  Serious: Yes (Hospitalization)
  Sender: FDA-Public Use
  Company Number: DE-GLAXOSMITHKLINE-B0950952A

PATIENT
  Age: 73 Year
  Sex: Female

DRUGS (10)
  1. TYVERB [Suspect]
     Indication: BREAST CANCER
  2. TRASTUZUMAB [Suspect]
     Indication: BREAST CANCER
     Dosage: 600MG CYCLIC
     Route: 058
     Dates: start: 20120914
  3. RECOMBINANT HUMAN HYALURONIDASE [Suspect]
     Indication: BREAST CANCER
     Route: 058
     Dates: start: 20120914
  4. CAPECITABINE [Suspect]
     Indication: BREAST CANCER
     Dates: start: 20130910
  5. PANTOZOL [Concomitant]
     Dates: start: 200907
  6. BETAHISTINE [Concomitant]
     Dosage: 36MG PER DAY
     Dates: start: 200806
  7. CO-DIOVANE [Concomitant]
     Dates: start: 200805
  8. SULPIRIDE [Concomitant]
     Dosage: 300MG PER DAY
     Dates: start: 200806
  9. ASPIRIN [Concomitant]
     Dosage: 100MG PER DAY
     Dates: start: 200806, end: 20130720
  10. CLEXANE [Concomitant]
     Dosage: 40MG PER DAY
     Dates: start: 20130208, end: 20130727

REACTIONS (1)
  - Renal failure acute [Recovered/Resolved]
